FAERS Safety Report 6016824-3 (Version None)
Quarter: 2008Q4

REPORT INFORMATION
  Report Type: 
  Country: None (occurrence: None)
  Receive Date: 20081219
  Receipt Date: 20081211
  Transmission Date: 20090506
  Serious: Yes (Hospitalization, Other)
  Sender: FDA-Public Use
  Company Number: 2008SP013363

PATIENT
  Age: 72 Year
  Sex: Female
  Weight: 45.1 kg

DRUGS (6)
  1. TEMODAL [Suspect]
     Dosage: 100 MG;QD; 100 MG;QD
     Dates: start: 20080520, end: 20080530
  2. TEMODAL [Suspect]
     Dosage: 100 MG;QD; 100 MG;QD
     Dates: start: 20080612, end: 20080613
  3. U-PRIN [Concomitant]
  4. MACPERAN [Concomitant]
  5. DICHLOZID [Concomitant]
  6. LIPITOR [Concomitant]

REACTIONS (7)
  - ALANINE AMINOTRANSFERASE INCREASED [None]
  - ASPARTATE AMINOTRANSFERASE INCREASED [None]
  - CHILLS [None]
  - CONVULSION [None]
  - NEUTROPENIA [None]
  - PYREXIA [None]
  - THROMBOCYTOPENIA [None]
